FAERS Safety Report 6221519-7 (Version None)
Quarter: 2009Q2

REPORT INFORMATION
  Report Type: 
  Country: None (occurrence: None)
  Receive Date: 20090610
  Receipt Date: 20090601
  Transmission Date: 20091009
  Serious: Yes (Other)
  Sender: FDA-Public Use
  Company Number: PHHY2009BR21794

PATIENT
  Sex: Female

DRUGS (5)
  1. EXELON [Suspect]
     Indication: DEMENTIA ALZHEIMER'S TYPE
     Dosage: 1 DF, BID
     Route: 048
  2. EXELON [Suspect]
     Dosage: 1 CAPSULE/DAY
     Route: 048
     Dates: end: 20090603
  3. EXELON [Suspect]
     Dosage: 3 CAPSULES/ DAY
     Route: 048
     Dates: start: 20090411, end: 20090412
  4. BETAHISTINE HYDROCHLORIDE [Concomitant]
     Indication: LABYRINTHITIS
  5. ANTIHYPERTENSIVE DRUGS [Concomitant]
     Indication: HYPERTENSION

REACTIONS (6)
  - BLOOD PRESSURE INADEQUATELY CONTROLLED [None]
  - DECREASED APPETITE [None]
  - HYPERTENSION [None]
  - INCORRECT DOSE ADMINISTERED [None]
  - NAUSEA [None]
  - WEIGHT DECREASED [None]
